FAERS Safety Report 4623205-3 (Version None)
Quarter: 2005Q1

REPORT INFORMATION
  Report Type: 
  Country: None (occurrence: None)
  Receive Date: 20050330
  Receipt Date: 20050203
  Transmission Date: 20050727
  Serious: Yes (Other)
  Sender: FDA-Public Use
  Company Number: USA-05-0044-STR

PATIENT
  Sex: Male

DRUGS (1)
  1. STRIANT [Suspect]

REACTIONS (2)
  - DYSPNOEA [None]
  - HEART RATE DECREASED [None]
